FAERS Safety Report 7571247-0 (Version None)
Quarter: 2011Q2

REPORT INFORMATION
  Report Type: 
  Country: None (occurrence: None)
  Receive Date: 20110624
  Receipt Date: 20110616
  Transmission Date: 20111010
  Serious: Yes (Other)
  Sender: FDA-Public Use
  Company Number: A0932504A

PATIENT
  Age: 81 Year
  Sex: Male

DRUGS (3)
  1. LAMICTAL XR [Suspect]
     Dosage: 400MG PER DAY
     Route: 048
     Dates: start: 20100101
  2. UNSPECIFIED MEDICATION [Concomitant]
  3. AMTURNIDE [Suspect]
     Route: 065

REACTIONS (2)
  - DRUG INTERACTION [None]
  - CONVULSION [None]
